FAERS Safety Report 21720290 (Version 1)
Quarter: 2022Q4

REPORT INFORMATION
  Report Type: Spontaneous
  Country: US (occurrence: US)
  Receive Date: 20221213
  Receipt Date: 20221213
  Transmission Date: 20230113
  Serious: Yes (Hospitalization)
  Sender: FDA-Public Use
  Company Number: US-STRIDES ARCOLAB LIMITED-2022SP011226

PATIENT
  Age: 72 Year
  Sex: Male

DRUGS (9)
  1. PREDNISOLONE [Suspect]
     Active Substance: PREDNISOLONE
     Indication: Colitis
     Dosage: 40 MILLIGRAM, UNKNOWN
     Route: 048
  2. PREDNISOLONE [Suspect]
     Active Substance: PREDNISOLONE
     Dosage: 80 MILLIGRAM, UNKNOWN
     Route: 048
  3. PREDNISOLONE [Suspect]
     Active Substance: PREDNISOLONE
     Dosage: UNK; (SLOW TAPER)
     Route: 048
  4. METHYLPREDNISOLONE [Suspect]
     Active Substance: METHYLPREDNISOLONE
     Indication: Colitis
     Dosage: 80 MILLIGRAM; PER DAY
     Route: 042
  5. METHYLPREDNISOLONE [Suspect]
     Active Substance: METHYLPREDNISOLONE
     Dosage: 100 MILLIGRAM; PER DAY
     Route: 042
  6. IPILIMUMAB [Concomitant]
     Active Substance: IPILIMUMAB
     Indication: Lung cancer metastatic
     Dosage: 290 MILLIGRAM, CYCLICAL; (FIRST CYCLE)
     Route: 065
  7. IPILIMUMAB [Concomitant]
     Active Substance: IPILIMUMAB
     Indication: Hepatic cancer metastatic
  8. NIVOLUMAB [Concomitant]
     Active Substance: NIVOLUMAB
     Indication: Lung cancer metastatic
     Dosage: 97 MILLIGRAM, CYCLICAL; (FIRST CYCLE)
     Route: 065
  9. NIVOLUMAB [Concomitant]
     Active Substance: NIVOLUMAB
     Indication: Hepatic cancer metastatic

REACTIONS (1)
  - Drug ineffective [Unknown]
